FAERS Safety Report 20469954 (Version 1)
Quarter: 2022Q1

REPORT INFORMATION
  Report Type: Spontaneous
  Country: US (occurrence: None)
  Receive Date: 20220212
  Receipt Date: 20220212
  Transmission Date: 20220424
  Serious: Yes (Other)
  Sender: FDA-Public Use
  Company Number: None

PATIENT
  Age: 37 Year
  Sex: Female
  Weight: 86.64 kg

DRUGS (1)
  1. MIRENA [Suspect]
     Active Substance: LEVONORGESTREL

REACTIONS (9)
  - Blood loss anaemia [None]
  - Complication of device insertion [None]
  - Heavy menstrual bleeding [None]
  - General physical health deterioration [None]
  - Frustration tolerance decreased [None]
  - Product complaint [None]
  - Economic problem [None]
  - Mental disorder [None]
  - Product label issue [None]

NARRATIVE: CASE EVENT DATE: 20210914
